FAERS Safety Report 24152461 (Version 1)
Quarter: 2024Q3

REPORT INFORMATION
  Report Type: Spontaneous
  Country: AU (occurrence: AU)
  Receive Date: 20240730
  Receipt Date: 20240730
  Transmission Date: 20241017
  Serious: Yes (Other)
  Sender: Atnahs Healthcare
  Company Number: AU-Atnahs Limited-ATNAHS20240702115

PATIENT

DRUGS (3)
  1. NAPROXEN [Suspect]
     Active Substance: NAPROXEN
     Indication: Product used for unknown indication
  2. ORPHENADRINE [Suspect]
     Active Substance: ORPHENADRINE
     Indication: Product used for unknown indication
  3. DICLOFENAC [Suspect]
     Active Substance: DICLOFENAC
     Indication: Product used for unknown indication

REACTIONS (8)
  - Delirium [Unknown]
  - Electrocardiogram QRS complex prolonged [Unknown]
  - Seizure [Unknown]
  - Poisoning deliberate [Unknown]
  - Mydriasis [Unknown]
  - Tachycardia [Unknown]
  - Somnolence [Unknown]
  - Intentional overdose [Unknown]
